FAERS Safety Report 10335335 (Version 2)
Quarter: 2014Q3

REPORT INFORMATION
  Report Type: Spontaneous
  Country: US (occurrence: US)
  Receive Date: 20140723
  Receipt Date: 20140723
  Transmission Date: 20150326
  Serious: No
  Sender: FDA-Public Use
  Company Number: US-UNITED THERAPEUTICS-UTC-043399

PATIENT
  Age: 66 Year
  Sex: Female
  Weight: 87.99 kg

DRUGS (3)
  1. ADCIRCA [Concomitant]
     Active Substance: TADALAFIL
  2. REMODULIN [Suspect]
     Active Substance: TREPROSTINIL
     Dosage: 0.021 UG/KG/MIN
     Route: 058
     Dates: start: 20131217
  3. TRACLEER [Concomitant]
     Active Substance: BOSENTAN\BOSENTAN MONOHYDRATE

REACTIONS (7)
  - Blister [Unknown]
  - Infusion site erythema [Unknown]
  - Nasopharyngitis [Unknown]
  - Nasal congestion [Unknown]
  - Infusion site pain [Unknown]
  - Infusion site swelling [Unknown]
  - Cough [Not Recovered/Not Resolved]

NARRATIVE: CASE EVENT DATE: 20140313
